FAERS Safety Report 10090566 (Version 1)
Quarter: 2014Q2

REPORT INFORMATION
  Report Type: Spontaneous
  Country: US (occurrence: US)
  Receive Date: 20140421
  Receipt Date: 20140421
  Transmission Date: 20141212
  Serious: Yes (Hospitalization)
  Sender: FDA-Public Use
  Company Number: US-BAYER-2014-056778

PATIENT
  Age: 21 Year
  Sex: Female
  Weight: 81.18 kg

DRUGS (11)
  1. YAZ [Suspect]
  2. TYLENOL WITH CODEINE [Concomitant]
  3. AZITHROMYCIN [Concomitant]
     Dosage: 250 MG, UNK
  4. IBUPROFEN [Concomitant]
  5. VITAMIN D [Concomitant]
     Dosage: SIGNIFICANT DOSES
  6. HERBAL PREPARATION [Concomitant]
  7. EXCEDRIN MIGRAINE [Concomitant]
  8. ASPIRIN [Concomitant]
  9. MARIJUANA [Concomitant]
  10. FOSPHENYTOIN [Concomitant]
  11. DILANTIN [Concomitant]

REACTIONS (2)
  - Intracranial venous sinus thrombosis [Recovered/Resolved]
  - Intracranial venous sinus thrombosis [Recovered/Resolved]
